FAERS Safety Report 6714084-9 (Version None)
Quarter: 2010Q2

REPORT INFORMATION
  Report Type: 
  Country: None (occurrence: None)
  Receive Date: 20100506
  Receipt Date: 20100428
  Transmission Date: 20101027
  Serious: Yes (Hospitalization, Other)
  Sender: FDA-Public Use
  Company Number: GB-WYE-G02631408

PATIENT
  Sex: Male
  Weight: 93 kg

DRUGS (2)
  1. BENEFIX [Suspect]
     Indication: HAEMORRHAGE
     Dosage: 2 ML INJECTED - 5000 IU VIAL MIXED WITH DILUENT (TYPE UNKNOWN)
     Dates: start: 20041220, end: 20041220
  2. BENEFIX [Suspect]
     Indication: FACTOR IX DEFICIENCY
     Dosage: 2500 IU VIAL MIXED WITH DILUENT (TYPE UNKNOWN)
     Dates: start: 20041221, end: 20041221

REACTIONS (20)
  - ANAPHYLACTIC REACTION [None]
  - ASTHENIA [None]
  - CHEST DISCOMFORT [None]
  - DIZZINESS [None]
  - DRUG INEFFECTIVE [None]
  - DYSGEUSIA [None]
  - DYSPNOEA [None]
  - FATIGUE [None]
  - HEADACHE [None]
  - HYPERSENSITIVITY [None]
  - INJECTION SITE DISCOMFORT [None]
  - INJECTION SITE PRURITUS [None]
  - LOCAL SWELLING [None]
  - MALAISE [None]
  - NAUSEA [None]
  - RASH ERYTHEMATOUS [None]
  - SWELLING FACE [None]
  - THROAT TIGHTNESS [None]
  - URTICARIA [None]
  - VERTIGO [None]
